FAERS Safety Report 24418184 (Version 1)
Quarter: 2024Q4

REPORT INFORMATION
  Report Type: Report from Study
  Country: CO (occurrence: CO)
  Receive Date: 20241009
  Receipt Date: 20241009
  Transmission Date: 20250115
  Serious: Yes (Death, Hospitalization, Other)
  Sender: TAKEDA
  Company Number: CO-TAKEDA-2024TUS092456

PATIENT
  Age: 62 Year
  Sex: Male
  Weight: 183 kg

DRUGS (1)
  1. PONATINIB [Suspect]
     Active Substance: PONATINIB
     Indication: Chronic myeloid leukaemia
     Dosage: 45 MILLIGRAM, QD
     Route: 048
     Dates: start: 20220824, end: 20241005

REACTIONS (2)
  - Death [Fatal]
  - Ischaemia [Recovering/Resolving]

NARRATIVE: CASE EVENT DATE: 20240913
